FAERS Safety Report 6782080-1 (Version None)
Quarter: 2010Q2

REPORT INFORMATION
  Report Type: 
  Country: None (occurrence: None)
  Receive Date: 20100621
  Receipt Date: 20100610
  Transmission Date: 20101027
  Serious: Yes (Other)
  Sender: FDA-Public Use
  Company Number: B0661358A

PATIENT

DRUGS (1)
  1. HEPTODIN [Suspect]
     Dosage: .1G PER DAY
     Route: 048
     Dates: start: 20100101

REACTIONS (2)
  - EXTRAPYRAMIDAL DISORDER [None]
  - TREMOR [None]
